FAERS Safety Report 9523033 (Version 2)
Quarter: 2013Q3

REPORT INFORMATION
  Report Type: Spontaneous
  Country: FR (occurrence: None)
  Receive Date: 20130823
  Receipt Date: 20130827
  Transmission Date: 20140515
  Serious: Yes (Hospitalization)
  Sender: FDA-Public Use
  Company Number: 2013037435

PATIENT
  Age: 61 Year
  Sex: Male

DRUGS (1)
  1. PRIVIGEN [Suspect]
     Route: 042
     Dates: start: 20130724, end: 20130725

REACTIONS (11)
  - Enterobacter sepsis [None]
  - Neutropenia [None]
  - Pyrexia [None]
  - Chills [None]
  - Hypotension [None]
  - Lung disorder [None]
  - Transaminases increased [None]
  - Gamma-glutamyltransferase increased [None]
  - Shock [None]
  - Dyspnoea [None]
  - Oxygen saturation [None]
